FAERS Safety Report 9990773 (Version 1)
Quarter: 2014Q1

REPORT INFORMATION
  Report Type: Spontaneous
  Country: US (occurrence: US)
  Receive Date: 20140310
  Receipt Date: 20140310
  Transmission Date: 20141002
  Serious: No
  Sender: FDA-Public Use
  Company Number: US-PFIZER INC-2014061151

PATIENT
  Age: 73 Year
  Sex: Female

DRUGS (11)
  1. LYRICA [Suspect]
     Dosage: 100 MG, 3X/DAY
     Route: 048
  2. PERCOCET [Concomitant]
     Dosage: 10/325MG TID PRN
  3. AMBIEN [Concomitant]
     Dosage: 10 MG, 1X/DAY (AT NIGHT)
  4. MOTRIN [Concomitant]
     Dosage: 800 MG, 3X/DAY
  5. VYTORIN [Concomitant]
     Dosage: UNK
  6. MORPHINE SULFATE ER [Concomitant]
     Dosage: 15 MG, 1X/DAY
  7. ATENOLOL [Concomitant]
     Dosage: 50 MG, 1X/DAY
  8. BENAZEPRIL [Concomitant]
     Dosage: 10 MG, 1X/DAY
  9. BABY ASPIRIN [Concomitant]
     Dosage: UNK, 1X/DAY
  10. FOSAMAX [Concomitant]
     Dosage: 70 MG, WEEKLY
  11. FLEXERIL [Concomitant]
     Dosage: 10 MG, UNK

REACTIONS (12)
  - Pain in extremity [Unknown]
  - Arthralgia [Unknown]
  - Neck pain [Unknown]
  - Pain [Unknown]
  - Musculoskeletal stiffness [Unknown]
  - Paraesthesia [Unknown]
  - Back pain [Unknown]
  - Musculoskeletal pain [Unknown]
  - Coccydynia [Unknown]
  - Sciatica [Unknown]
  - Myalgia [Unknown]
  - Mobility decreased [Unknown]
